FAERS Safety Report 25587364 (Version 1)
Quarter: 2025Q3

REPORT INFORMATION
  Report Type: Spontaneous
  Country: GB (occurrence: GB)
  Receive Date: 20250721
  Receipt Date: 20250721
  Transmission Date: 20251020
  Serious: Yes (Hospitalization)
  Sender: SK LIFE SCIENCE
  Company Number: GB-ACRAF-2025-038471

PATIENT

DRUGS (1)
  1. XCOPRI [Suspect]
     Active Substance: CENOBAMATE
     Indication: Product used for unknown indication
     Route: 065

REACTIONS (4)
  - Off label use [Unknown]
  - Seizure [Unknown]
  - Apnoea [Unknown]
  - Malaise [Unknown]
